FAERS Safety Report 14393775 (Version 1)
Quarter: 2018Q1

REPORT INFORMATION
  Report Type: Spontaneous
  Country: US (occurrence: US)
  Receive Date: 20180113
  Receipt Date: 20180113
  Transmission Date: 20180509
  Serious: No
  Sender: FDA-Public Use
  Company Number: None

PATIENT
  Age: 77 Year
  Sex: Male

DRUGS (1)
  1. XALKORI [Suspect]
     Active Substance: CRIZOTINIB
     Indication: RHEUMATOID ARTHRITIS
     Route: 048
     Dates: start: 20171207

REACTIONS (4)
  - Joint swelling [None]
  - Cough [None]
  - Fatigue [None]
  - Oedema peripheral [None]

NARRATIVE: CASE EVENT DATE: 20180112
